FAERS Safety Report 14453291 (Version 1)
Quarter: 2018Q1

REPORT INFORMATION
  Report Type: Spontaneous
  Country: US (occurrence: US)
  Receive Date: 20180126
  Receipt Date: 20180126
  Transmission Date: 20180509
  Serious: Yes (Disabling)
  Sender: FDA-Public Use
  Company Number: None

PATIENT
  Weight: 71.55 kg

DRUGS (6)
  1. MAGNESIUM [Concomitant]
     Active Substance: MAGNESIUM
  2. VITAMIN D [Concomitant]
     Active Substance: CHOLECALCIFEROL
  3. LEVOTHYROXINE. [Concomitant]
     Active Substance: LEVOTHYROXINE
  4. BABY ASPIRIN [Concomitant]
     Active Substance: ASPIRIN
  5. ZOMETA [Suspect]
     Active Substance: ZOLEDRONIC ACID
     Indication: BONE CANCER
     Route: 042
     Dates: start: 20180118
  6. ANASTRIZOLE [Concomitant]

REACTIONS (3)
  - Back pain [None]
  - Pain in extremity [None]
  - Vomiting [None]

NARRATIVE: CASE EVENT DATE: 20180118
